APPROVED DRUG PRODUCT: H-CORT
Active Ingredient: HYDROCORTISONE
Strength: 100%
Dosage Form/Route: POWDER;FOR RX COMPOUNDING
Application: A087834 | Product #001
Applicant: TORCH LABORATORIES INC
Approved: Mar 29, 1982 | RLD: No | RS: No | Type: DISCN